FAERS Safety Report 7285884-4 (Version None)
Quarter: 2011Q1

REPORT INFORMATION
  Report Type: 
  Country: None (occurrence: None)
  Receive Date: 20110210
  Receipt Date: 20110204
  Transmission Date: 20110831
  Serious: Yes (Hospitalization)
  Sender: FDA-Public Use
  Company Number: GR-TEVA-255178ISR

PATIENT
  Sex: Male

DRUGS (12)
  1. PARACETAMOL [Concomitant]
     Indication: ARTHRALGIA
     Route: 048
     Dates: start: 20091210
  2. TRIPTORELIN [Concomitant]
     Indication: HORMONE THERAPY
  3. LANSOPRAZOLE [Concomitant]
     Indication: GASTROINTESTINAL DISORDER THERAPY
     Dates: start: 20080101
  4. BUDESONIDE [Concomitant]
     Indication: CHRONIC OBSTRUCTIVE PULMONARY DISEASE
     Route: 055
     Dates: start: 19940101
  5. PREDNISOLONE [Suspect]
     Indication: PROSTATE CANCER METASTATIC
     Dosage: DOSE INTERRUPTION
     Route: 048
     Dates: start: 20091222
  6. TRIPTORELIN [Concomitant]
     Indication: PROSTATE CANCER
     Route: 030
     Dates: start: 20091222
  7. PARACETAMOL [Concomitant]
     Indication: ABDOMINAL PAIN LOWER
     Route: 048
     Dates: start: 20100414
  8. ABIRATERONE ACETATE- BLINDED [Suspect]
     Indication: PROSTATE CANCER METASTATIC
     Dosage: DOSE INTERRUPTION
     Route: 048
     Dates: start: 20091222
  9. TIOTROPIUM [Concomitant]
     Dates: start: 19940101
  10. PARACETAMOL [Concomitant]
     Indication: CANCER PAIN
     Route: 048
  11. ZOLEDRONIC ACID [Concomitant]
     Indication: BONE DENSITY DECREASED
     Route: 042
  12. LORAZEPAM [Concomitant]
     Indication: INSOMNIA
     Route: 048

REACTIONS (1)
  - VOMITING [None]
